FAERS Safety Report 5470820-3 (Version None)
Quarter: 2007Q3

REPORT INFORMATION
  Report Type: 
  Country: None (occurrence: None)
  Receive Date: 20070928
  Receipt Date: 20070918
  Transmission Date: 20080115
  Serious: Yes (Hospitalization, Other)
  Sender: FDA-Public Use
  Company Number: HQWYE209018SEP07

PATIENT
  Age: 45 Year
  Sex: Female

DRUGS (1)
  1. 0.25MG LEVONORGESTREL/0.05MG ETHINYL ESTRADIOL [Suspect]
     Indication: ORAL CONTRACEPTION
     Dosage: UNSPECIFIED DOSE TAKEN ^CONTINUOUSLY, WITH NO MEDICAL CONTROL AT ALL^
     Route: 048

REACTIONS (1)
  - PELIOSIS HEPATIS [None]
